FAERS Safety Report 13485591 (Version 4)
Quarter: 2017Q3

REPORT INFORMATION
  Report Type: Spontaneous
  Country: US (occurrence: US)
  Receive Date: 20170425
  Receipt Date: 20170713
  Transmission Date: 20171127
  Serious: Yes (Other)
  Sender: FDA-Public Use
  Company Number: US-PFIZER INC-2017177318

PATIENT
  Age: 69 Year
  Sex: Male
  Weight: 108.4 kg

DRUGS (11)
  1. SUTENT [Suspect]
     Active Substance: SUNITINIB MALATE
     Dosage: 50 MG, CYCLIC (DAILY X 14 DAYS ON, 7 DAYS OFF THEN REPEAT)
     Route: 048
     Dates: start: 20170509
  2. XANAX [Concomitant]
     Active Substance: ALPRAZOLAM
     Dosage: UNK
  3. VITAMIN D [Concomitant]
     Active Substance: CHOLECALCIFEROL
     Dosage: UNK
  4. SUTENT [Suspect]
     Active Substance: SUNITINIB MALATE
     Indication: RENAL CELL CARCINOMA STAGE IV
     Dosage: 50 MG, CYCLIC (28 DAYS ON/14DAYS OFF)
  5. AMBIEN [Concomitant]
     Active Substance: ZOLPIDEM TARTRATE
     Dosage: UNK
  6. SUTENT [Suspect]
     Active Substance: SUNITINIB MALATE
     Dosage: UNK, CYCLIC (TAKING IT FOR 7 DAYS AND OFF FOR 7 DAYS)
  7. DIOVAN [Concomitant]
     Active Substance: VALSARTAN
     Dosage: UNK
  8. WELLBUTRIN [Concomitant]
     Active Substance: BUPROPION HYDROCHLORIDE
     Dosage: UNK
  9. SUTENT [Suspect]
     Active Substance: SUNITINIB MALATE
     Dosage: 50 MG, CYCLIC (28 DAYS ON/14DAYS OFF)
     Route: 048
     Dates: start: 201703
  10. OXYCODONE [Concomitant]
     Active Substance: OXYCODONE
     Dosage: UNK
  11. ALLOPURINOL. [Concomitant]
     Active Substance: ALLOPURINOL
     Dosage: UNK

REACTIONS (12)
  - Dry mouth [Unknown]
  - Stomatitis [Unknown]
  - Dysphagia [Not Recovered/Not Resolved]
  - Oropharyngeal pain [Unknown]
  - Nausea [Unknown]
  - Abdominal discomfort [Unknown]
  - Pain [Unknown]
  - Dry skin [Unknown]
  - Arthralgia [Unknown]
  - Fatigue [Unknown]
  - Dyspepsia [Unknown]
  - Skin discolouration [Unknown]

NARRATIVE: CASE EVENT DATE: 20170621
